FAERS Safety Report 5572845-6 (Version None)
Quarter: 2007Q4

REPORT INFORMATION
  Report Type: 
  Country: None (occurrence: None)
  Receive Date: 20071223
  Receipt Date: 20071220
  Transmission Date: 20080405
  Serious: Yes (Hospitalization)
  Sender: FDA-Public Use
  Company Number: PHHO2006DE21737

PATIENT
  Age: 65 Year
  Sex: Female
  Weight: 61 kg

DRUGS (5)
  1. MYFORTIC [Suspect]
     Indication: RENAL TRANSPLANT
     Dosage: 1440 MG, BID
     Route: 048
  2. MYFORTIC [Suspect]
     Dosage: 1080 MG, BID
     Route: 048
  3. MYFORTIC [Suspect]
     Dosage: 720 MG, BID
     Route: 048
     Dates: start: 20061229
  4. NEORAL [Concomitant]
     Indication: RENAL TRANSPLANT
  5. URBASON [Concomitant]
     Indication: RENAL TRANSPLANT

REACTIONS (5)
  - ABDOMINAL PAIN [None]
  - DECREASED APPETITE [None]
  - DIARRHOEA [None]
  - FLATULENCE [None]
  - VOMITING [None]
